FAERS Safety Report 9819495 (Version 2)
Quarter: 2014Q2

REPORT INFORMATION
  Report Type: Report from Study
  Country: US (occurrence: US)
  Receive Date: 20140115
  Receipt Date: 20140429
  Transmission Date: 20141212
  Serious: Yes (Life-Threatening, Hospitalization)
  Sender: FDA-Public Use
  Company Number: US-BAYER-2014-003671

PATIENT
  Age: 56 Year
  Sex: Female
  Weight: 99.77 kg

DRUGS (7)
  1. ADEMPAS [Suspect]
     Indication: PULMONARY HYPERTENSION
     Dosage: 2.0 MG, TID
     Route: 048
  2. ADEMPAS [Interacting]
     Indication: PULMONARY HYPERTENSION
     Dosage: 2.5 MG, TID
  3. ISOSORBIDE [Interacting]
     Indication: PULMONARY HYPERTENSION
     Dosage: 120 MG, TID
  4. PRADAXA [Concomitant]
     Dosage: 150 MG, BID
  5. POTASSIUM CHLORIDE [Concomitant]
  6. EPLERENONE [Concomitant]
     Dosage: 50 MG, QD
  7. DIGOXIN [Concomitant]

REACTIONS (5)
  - Respiratory arrest [Recovering/Resolving]
  - Dyspnoea [None]
  - Loss of consciousness [None]
  - Hypotension [Recovering/Resolving]
  - Drug interaction [None]
